FAERS Safety Report 6043465-4 (Version None)
Quarter: 2009Q1

REPORT INFORMATION
  Report Type: 
  Country: None (occurrence: None)
  Receive Date: 20090120
  Receipt Date: 20090109
  Transmission Date: 20090719
  Serious: Yes (Other)
  Sender: FDA-Public Use
  Company Number: US-JNJFOC-20090101859

PATIENT
  Age: 5 Decade
  Sex: Female

DRUGS (2)
  1. REMICADE [Suspect]
     Indication: PSORIASIS
     Route: 042
  2. DACROMIS [Concomitant]
     Indication: PSORIASIS
     Route: 061

REACTIONS (2)
  - LUNG NEOPLASM [None]
  - RENAL NEOPLASM [None]
